FAERS Safety Report 9330161 (Version 1)
Quarter: 2013Q2

REPORT INFORMATION
  Report Type: Spontaneous
  Country: US (occurrence: US)
  Receive Date: 20130604
  Receipt Date: 20130604
  Transmission Date: 20140414
  Serious: No
  Sender: FDA-Public Use
  Company Number: US-TEVA-409898USA

PATIENT
  Age: 33 Year
  Sex: Female
  Weight: 54.93 kg

DRUGS (7)
  1. PLAN B ONE-STEP [Suspect]
     Indication: POST COITAL CONTRACEPTION
     Dosage: 1.5 MILLIGRAM DAILY;
     Route: 048
     Dates: start: 20130512, end: 20130512
  2. ORTHO TRI-CYCLEN [Concomitant]
     Indication: MENORRHAGIA
     Dates: start: 2003
  3. ORTHO TRI-CYCLEN [Concomitant]
     Indication: MENORRHAGIA
  4. ORTHO TRI-CYCLEN [Concomitant]
     Indication: DYSMENORRHOEA
  5. ORTHO TRI-CYCLEN [Concomitant]
     Indication: CONTRACEPTION
  6. ZOLOFT [Concomitant]
     Indication: PREMENSTRUAL DYSPHORIC DISORDER
  7. KLONOPIN [Concomitant]
     Indication: PREMENSTRUAL DYSPHORIC DISORDER

REACTIONS (3)
  - Premenstrual dysphoric disorder [Not Recovered/Not Resolved]
  - Metrorrhagia [Not Recovered/Not Resolved]
  - Pelvic pain [Recovered/Resolved]
